FAERS Safety Report 22824157 (Version 2)
Quarter: 2024Q3

REPORT INFORMATION
  Report Type: Spontaneous
  Country: US (occurrence: US)
  Receive Date: 20230815
  Receipt Date: 20240826
  Transmission Date: 20241017
  Serious: Yes (Disabling, Other)
  Sender: BIOMARIN
  Company Number: US-SA-SAC20230810000875

PATIENT

DRUGS (1)
  1. LARONIDASE [Suspect]
     Active Substance: LARONIDASE
     Indication: Mucopolysaccharidosis I
     Dosage: 29 UNK, QW
     Route: 042
     Dates: start: 20070625

REACTIONS (8)
  - Blindness [Not Recovered/Not Resolved]
  - Loss of personal independence in daily activities [Not Recovered/Not Resolved]
  - Corneal opacity [Not Recovered/Not Resolved]
  - Short stature [Not Recovered/Not Resolved]
  - Gait disturbance [Not Recovered/Not Resolved]
  - Musculoskeletal deformity [Not Recovered/Not Resolved]
  - Visual impairment [Not Recovered/Not Resolved]
  - Joint contracture [Not Recovered/Not Resolved]
